FAERS Safety Report 4887112-3 (Version None)
Quarter: 2006Q1

REPORT INFORMATION
  Report Type: 
  Country: None (occurrence: None)
  Receive Date: 20060120
  Receipt Date: 20051005
  Transmission Date: 20060701
  Serious: Yes (Hospitalization)
  Sender: FDA-Public Use
  Company Number: US-MERCK-0510USA04729

PATIENT
  Age: 52 Year
  Sex: Male
  Weight: 89 kg

DRUGS (3)
  1. VIOXX [Suspect]
     Indication: PAIN
     Route: 048
     Dates: start: 20000901
  2. LORTAB [Concomitant]
     Route: 065
  3. TRIAZOLAM [Concomitant]
     Route: 065

REACTIONS (4)
  - BALANCE DISORDER [None]
  - HEADACHE [None]
  - ISCHAEMIC STROKE [None]
  - MUSCLE TWITCHING [None]
